FAERS Safety Report 5138427-5 (Version None)
Quarter: 2006Q4

REPORT INFORMATION
  Report Type: 
  Country: None (occurrence: None)
  Receive Date: 20061030
  Receipt Date: 20060222
  Transmission Date: 20070319
  Serious: No
  Sender: FDA-Public Use
  Company Number: US-GLAXOSMITHKLINE-A0594799A

PATIENT
  Age: 66 Year
  Sex: Female

DRUGS (5)
  1. ADVAIR HFA [Suspect]
     Indication: COUGH
     Dosage: 1PUFF AT NIGHT
     Route: 055
     Dates: start: 20030101
  2. LESCOL [Concomitant]
  3. TRAZODONE HCL [Concomitant]
  4. ALPRAZOLAM [Concomitant]
  5. ACTONEL [Concomitant]

REACTIONS (2)
  - DRUG INEFFECTIVE [None]
  - PHARMACEUTICAL PRODUCT COMPLAINT [None]
